FAERS Safety Report 5416796-6 (Version None)
Quarter: 2007Q3

REPORT INFORMATION
  Report Type: 
  Country: None (occurrence: None)
  Receive Date: 20070815
  Receipt Date: 20070815
  Transmission Date: 20080115
  Serious: Yes (Hospitalization)
  Sender: FDA-Public Use
  Company Number: None

PATIENT
  Age: 46 Year
  Sex: Male
  Weight: 123.3784 kg

DRUGS (1)
  1. PHENYLPHERINE HCL 10 MG PHENYLPHERINE HCL 5MG. [Suspect]
     Indication: SINUS HEADACHE
     Dosage: 1 TAB 1X PO
     Route: 048
     Dates: start: 20070812, end: 20070812

REACTIONS (4)
  - CHEST DISCOMFORT [None]
  - FEELING HOT [None]
  - PARAESTHESIA ORAL [None]
  - PRURITUS [None]
